FAERS Safety Report 5999576-2 (Version None)
Quarter: 2008Q4

REPORT INFORMATION
  Report Type: 
  Country: None (occurrence: None)
  Receive Date: 20081211
  Receipt Date: 20081201
  Transmission Date: 20090506
  Serious: Yes (Death, Other)
  Sender: FDA-Public Use
  Company Number: 2008-04522

PATIENT
  Age: 51 Year
  Sex: Female

DRUGS (3)
  1. VELCADE [Suspect]
     Indication: MULTIPLE MYELOMA
     Dosage: 1.3 MG/M2, INTRAVENOUS
     Route: 042
     Dates: start: 20081126
  2. MELPHALAN [Concomitant]
  3. PREDNISOLONE [Concomitant]

REACTIONS (6)
  - ABDOMINAL PAIN UPPER [None]
  - BODY TEMPERATURE INCREASED [None]
  - COMA [None]
  - ENCEPHALOPATHY [None]
  - NAUSEA [None]
  - VOMITING [None]
